FAERS Safety Report 17681847 (Version 2)
Quarter: 2020Q2

REPORT INFORMATION
  Report Type: Spontaneous
  Country: US (occurrence: US)
  Receive Date: 20200417
  Receipt Date: 20200515
  Transmission Date: 20200714
  Serious: Yes (Other)
  Sender: FDA-Public Use
  Company Number: US-AUROBINDO-AUR-APL-2020-019361

PATIENT

DRUGS (1)
  1. MARQIBO [Suspect]
     Active Substance: VINCRISTINE SULFATE
     Indication: PRODUCT USED FOR UNKNOWN INDICATION
     Dosage: UNK, 1 DOSE
     Route: 065

REACTIONS (2)
  - International normalised ratio increased [Unknown]
  - Hyperbilirubinaemia [Unknown]
